FAERS Safety Report 6641506-4 (Version None)
Quarter: 2010Q1

REPORT INFORMATION
  Report Type: 
  Country: None (occurrence: None)
  Receive Date: 20100317
  Receipt Date: 20100317
  Transmission Date: 20100710
  Serious: Yes (Other)
  Sender: FDA-Public Use
  Company Number: None

PATIENT
  Age: 40 Year
  Sex: Female
  Weight: 74.3 kg

DRUGS (9)
  1. MORPHINE [Suspect]
     Indication: PAIN
     Dosage: 4MG ONCE IV
     Route: 042
     Dates: start: 20091230
  2. HYDROMORPHONE HCL [Suspect]
     Dosage: 2.2MG PCA IV
     Route: 042
  3. CEFAZOLIN [Concomitant]
  4. DOCUSATE [Concomitant]
  5. FERROUS SULFATE TAB [Concomitant]
  6. ONDANSETRON [Concomitant]
  7. OXYCODONE HCL AND ACETAMINOPHEN [Concomitant]
  8. PROMETHAZINE [Concomitant]
  9. RANITIDINE [Concomitant]

REACTIONS (1)
  - UNRESPONSIVE TO STIMULI [None]
